FAERS Safety Report 10725325 (Version 2)
Quarter: 2015Q2

REPORT INFORMATION
  Report Type: Spontaneous
  Country: VN (occurrence: VN)
  Receive Date: 20150120
  Receipt Date: 20150617
  Transmission Date: 20150821
  Serious: Yes (Other)
  Sender: FDA-Public Use
  Company Number: VN-ROCHE-1422963

PATIENT
  Age: 43 Year
  Sex: Male

DRUGS (12)
  1. MEDROL [Suspect]
     Active Substance: METHYLPREDNISOLONE
     Indication: PROPHYLAXIS AGAINST TRANSPLANT REJECTION
     Route: 065
  2. INSULINE [Concomitant]
     Active Substance: INSULIN NOS
     Indication: TYPE 1 DIABETES MELLITUS
     Route: 065
  3. MEDROL [Suspect]
     Active Substance: METHYLPREDNISOLONE
     Indication: PROPHYLAXIS AGAINST TRANSPLANT REJECTION
     Route: 065
  4. SOLU-MEDROL [Suspect]
     Active Substance: METHYLPREDNISOLONE SODIUM SUCCINATE
     Indication: PROPHYLAXIS AGAINST TRANSPLANT REJECTION
  5. CYCLOSPORIN A [Suspect]
     Active Substance: CYCLOSPORINE
     Dosage: STARTING DOSE
     Route: 041
  6. CYCLOSPORIN A [Suspect]
     Active Substance: CYCLOSPORINE
     Indication: PROPHYLAXIS AGAINST TRANSPLANT REJECTION
     Dosage: FROM MONTH 2, C0 FROM150-200NG/ML, C2 FROM 800-1000NG/ML
     Route: 041
  7. SOLU-MEDROL [Suspect]
     Active Substance: METHYLPREDNISOLONE SODIUM SUCCINATE
     Indication: PROPHYLAXIS AGAINST TRANSPLANT REJECTION
     Dosage: HALVE THE DOSE EVERY 2 DAYS UNTIL THE DOSAGE WAS 20MG/DAY
     Route: 065
  8. MEDROL [Suspect]
     Active Substance: METHYLPREDNISOLONE
     Route: 065
  9. CELLCEPT [Suspect]
     Active Substance: MYCOPHENOLATE MOFETIL\MYCOPHENOLATE MOFETIL HYDROCHLORIDE
     Indication: PROPHYLAXIS AGAINST TRANSPLANT REJECTION
  10. MEDROL [Suspect]
     Active Substance: METHYLPREDNISOLONE
     Route: 065
  11. CELLCEPT [Suspect]
     Active Substance: MYCOPHENOLATE MOFETIL\MYCOPHENOLATE MOFETIL HYDROCHLORIDE
     Indication: PROPHYLAXIS AGAINST TRANSPLANT REJECTION
     Route: 065
  12. CYCLOSPORIN A [Suspect]
     Active Substance: CYCLOSPORINE
     Indication: PROPHYLAXIS AGAINST TRANSPLANT REJECTION
     Dosage: 1ST 2 WEEKS, CYA^S CONCENTRATION KEPT AT 180-220 NG/ML
     Route: 041

REACTIONS (3)
  - Pancreatitis [Recovered/Resolved]
  - Postoperative wound infection [Recovered/Resolved]
  - Duodenal fistula [Recovering/Resolving]
